FAERS Safety Report 7989284-0 (Version None)
Quarter: 2011Q4

REPORT INFORMATION
  Report Type: 
  Country: None (occurrence: None)
  Receive Date: 20111007
  Receipt Date: 20110610
  Transmission Date: 20120403
  Serious: No
  Sender: FDA-Public Use
  Company Number: 2011HGS-002348

PATIENT
  Age: 48 Year
  Sex: Female
  Weight: 44.9061 kg

DRUGS (16)
  1. PLAQUENIL (HYDROXYCHLOROQUINE SULFATE)(HYDROXYCHLOROQUINE SULFATE) [Concomitant]
  2. FOLIC ACID [Concomitant]
  3. ROPINIROLE [Concomitant]
  4. BENLYSTA [Suspect]
     Indication: SYSTEMIC LUPUS ERYTHEMATOSUS
     Dosage: 10 MG/KG, 1 IN 28 D,  INTRAVENOUS DRIP
     Route: 041
     Dates: start: 20110607
  5. TRAZODONE (TRAZODONE)(TRAZODONE) [Concomitant]
  6. OXYCONTIN (OXYCODONE HYDROCHLORIDE) (OXYCODONE HYDROCHLORIDE) [Concomitant]
  7. VICODIN (VICODIN)(PARACETAMOL, HYDROCODONE BITARTRATE) [Concomitant]
  8. PREDNISONE [Concomitant]
  9. ACTONEL (RISEDRONATE SODIUM)(RISEDRONATE SODIUM) [Concomitant]
  10. METHOTREXATE [Concomitant]
  11. XANAX [Concomitant]
  12. NOVOCAIN (PROCAINE HYDROCHLORIDE)(PROCAINE [Concomitant]
  13. LIDOCAINE [Concomitant]
  14. BENADRYL [Suspect]
     Indication: URTICARIA
     Dosage: INTRAVENOUS (NOT OTHERWISE SPECIFIED)
     Route: 042
     Dates: start: 20110607
  15. GABAPENTIN [Concomitant]
  16. SUNDOWN NATURALS HAIR SKIN NAILS (MINERAL SUPPLEMENTS)(NULL) [Concomitant]

REACTIONS (14)
  - ABORTION INDUCED [None]
  - SKIN SENSITISATION [None]
  - CONTUSION [None]
  - PAIN [None]
  - FEELING COLD [None]
  - SKIN BURNING SENSATION [None]
  - BLISTER [None]
  - PAIN IN EXTREMITY [None]
  - INFUSION SITE HAEMORRHAGE [None]
  - ASTHENIA [None]
  - NECK PAIN [None]
  - OEDEMA PERIPHERAL [None]
  - PRURITUS [None]
  - URTICARIA [None]
